FAERS Safety Report 17117396 (Version 1)
Quarter: 2019Q4

REPORT INFORMATION
  Report Type: Spontaneous
  Country: FR (occurrence: FR)
  Receive Date: 20191205
  Receipt Date: 20191205
  Transmission Date: 20200122
  Serious: Yes (Hospitalization)
  Sender: FDA-Public Use
  Company Number: FR-MYLANLABS-2019M1118981

PATIENT
  Age: 75 Year
  Sex: Male

DRUGS (3)
  1. FILGRASTIM [Suspect]
     Active Substance: FILGRASTIM
     Indication: PRODUCT USED FOR UNKNOWN INDICATION
  2. VORICONAZOLE. [Suspect]
     Active Substance: VORICONAZOLE
     Indication: ASPERGILLUS INFECTION
     Dosage: DOSE WAS INCREASED GRADUALLY
  3. VORICONAZOLE. [Suspect]
     Active Substance: VORICONAZOLE
     Dosage: DOSE WAS INCREASED GRADUALLY

REACTIONS (2)
  - Brain abscess [Recovering/Resolving]
  - Aspergillus infection [Recovered/Resolved]
